FAERS Safety Report 18053359 (Version 1)
Quarter: 2020Q3

REPORT INFORMATION
  Report Type: Spontaneous
  Country: US (occurrence: US)
  Receive Date: 20200721
  Receipt Date: 20200721
  Transmission Date: 20201103
  Serious: No
  Sender: FDA-Public Use
  Company Number: None

PATIENT
  Age: 59 Year
  Sex: Male
  Weight: 113 kg

DRUGS (7)
  1. FAMOTIDINE. [Concomitant]
     Active Substance: FAMOTIDINE
  2. CEFEPIME [Concomitant]
     Active Substance: CEFEPIME HYDROCHLORIDE
     Dates: end: 20200718
  3. REMDESIVIR. [Suspect]
     Active Substance: REMDESIVIR
  4. DEXAMETHASONE. [Concomitant]
     Active Substance: DEXAMETHASONE
  5. ENOXAPARIN [Concomitant]
     Active Substance: ENOXAPARIN
  6. LANTUS [Concomitant]
     Active Substance: INSULIN GLARGINE
  7. CALCIUM CHLORIDE. [Concomitant]
     Active Substance: CALCIUM CHLORIDE

REACTIONS (6)
  - Therapy cessation [None]
  - Haemodialysis [None]
  - Sepsis [None]
  - Renal failure [None]
  - Cardiogenic shock [None]
  - Paralysis [None]

NARRATIVE: CASE EVENT DATE: 20200717
